FAERS Safety Report 20764320 (Version 2)
Quarter: 2022Q3

REPORT INFORMATION
  Report Type: Report from Study
  Country: DE (occurrence: DE)
  Receive Date: 20220428
  Receipt Date: 20220919
  Transmission Date: 20221026
  Serious: Yes (Hospitalization, Other)
  Sender: FDA-Public Use
  Company Number: DE-TAKEDA-DE201906170

PATIENT
  Age: 63 Year
  Sex: Male
  Weight: 62 kg

DRUGS (15)
  1. TEDUGLUTIDE [Suspect]
     Active Substance: TEDUGLUTIDE
     Indication: Short-bowel syndrome
     Dosage: 3.1 MILLIGRAM, QD
     Route: 042
     Dates: start: 20170504, end: 20200729
  2. TEDUGLUTIDE [Suspect]
     Active Substance: TEDUGLUTIDE
     Indication: Short-bowel syndrome
     Dosage: 3.1 MILLIGRAM, QD
     Route: 042
     Dates: start: 20170504, end: 20200729
  3. TEDUGLUTIDE [Suspect]
     Active Substance: TEDUGLUTIDE
     Indication: Short-bowel syndrome
     Dosage: 3.1 MILLIGRAM, QD
     Route: 042
     Dates: start: 20170504, end: 20200729
  4. TEDUGLUTIDE [Suspect]
     Active Substance: TEDUGLUTIDE
     Indication: Short-bowel syndrome
     Dosage: 3.1 MILLIGRAM, QD
     Route: 042
     Dates: start: 20170504, end: 20200729
  5. LORATADINE [Concomitant]
     Active Substance: LORATADINE
     Indication: Product used for unknown indication
  6. OPTIDERM [Concomitant]
     Indication: Prurigo
  7. LORATADINE [Concomitant]
     Active Substance: LORATADINE
     Indication: Prurigo
  8. NITROFURANTOIN [Concomitant]
     Active Substance: NITROFURANTOIN
     Indication: Urinary tract infection
  9. CEFUROXIME [Concomitant]
     Active Substance: CEFUROXIME
     Indication: Enterocutaneous fistula
  10. METRONIDAZOLE [Concomitant]
     Active Substance: METRONIDAZOLE
     Indication: Enterocutaneous fistula
  11. IRON [Concomitant]
     Active Substance: IRON
     Indication: Normochromic normocytic anaemia
     Dosage: UNK
     Route: 042
     Dates: start: 202007, end: 202008
  12. FOLIC ACID [Concomitant]
     Active Substance: FOLIC ACID
     Indication: Normochromic normocytic anaemia
     Dosage: UNK
     Route: 048
     Dates: start: 202007, end: 202008
  13. DOXYCYCLINE [Concomitant]
     Active Substance: DOXYCYCLINE
     Indication: Pemphigoid
     Dosage: 200 MILLIGRAM, QD
     Route: 048
     Dates: start: 20200615
  14. CEFEPIME HYDROCHLORIDE [Concomitant]
     Active Substance: CEFEPIME HYDROCHLORIDE
     Indication: Device related sepsis
     Dosage: 2.38 GRAM, TID
     Route: 048
     Dates: start: 20200723, end: 20200804
  15. ASPIRIN [Concomitant]
     Active Substance: ASPIRIN
     Indication: Prophylaxis
     Dosage: 100 MILLIGRAM, QD
     Route: 048
     Dates: start: 202006

REACTIONS (6)
  - Enterocutaneous fistula [Not Recovered/Not Resolved]
  - Impaired healing [Recovered/Resolved]
  - Intestinal fistula infection [Recovered/Resolved]
  - Hypophagia [Not Recovered/Not Resolved]
  - Intestinal fistula [Not Recovered/Not Resolved]
  - Condition aggravated [Recovered/Resolved]

NARRATIVE: CASE EVENT DATE: 20180801
